FAERS Safety Report 8600451-5 (Version None)
Quarter: 2012Q3

REPORT INFORMATION
  Report Type: 
  Country: None (occurrence: None)
  Receive Date: 20120808
  Receipt Date: 20120808
  Transmission Date: 20120928
  Serious: No
  Sender: FDA-Public Use
  Company Number: None

PATIENT

DRUGS (1)
  1. SYMBICORT [Suspect]

REACTIONS (4)
  - ATRIAL FLUTTER [None]
  - CARDIAC DISORDER [None]
  - HYPERSENSITIVITY [None]
  - RESPIRATORY DISORDER [None]
